FAERS Safety Report 23716124 (Version 2)
Quarter: 2024Q3

REPORT INFORMATION
  Report Type: Report from Study
  Country: IT (occurrence: IT)
  Receive Date: 20240408
  Receipt Date: 20240701
  Transmission Date: 20241017
  Serious: Yes (Other)
  Sender: ABBVIE
  Company Number: IT-ABBVIE-5708957

PATIENT
  Age: 73 Year
  Sex: Female

DRUGS (2)
  1. CARBIDOPA\LEVODOPA [Suspect]
     Active Substance: CARBIDOPA\LEVODOPA
     Indication: Parkinson^s disease
     Dosage: DAILY DOSE (MG/DAY): 1058; PUMP SETTING: MD: 3,7ML+3ML; CR: 3,4ML/H (13H); ED: 2,5ML
     Route: 050
     Dates: start: 20181001, end: 202402
  2. CARBIDOPA\LEVODOPA [Suspect]
     Active Substance: CARBIDOPA\LEVODOPA
     Route: 050
     Dates: start: 202406

REACTIONS (1)
  - Intestinal ulcer [Recovered/Resolved]

NARRATIVE: CASE EVENT DATE: 20240401
